FAERS Safety Report 20009454 (Version 1)
Quarter: 2021Q4

REPORT INFORMATION
  Report Type: Spontaneous
  Country: CN (occurrence: CN)
  Receive Date: 20211028
  Receipt Date: 20211028
  Transmission Date: 20220303
  Serious: Yes (Other)
  Sender: FDA-Public Use
  Company Number: CN-SA-SAC20211027000499

PATIENT
  Age: 82 Year
  Sex: Male

DRUGS (2)
  1. CLOPIDOGREL BISULFATE [Suspect]
     Active Substance: CLOPIDOGREL BISULFATE
     Indication: Coronary arterial stent insertion
     Dosage: 75 MG, QD
     Route: 048
     Dates: start: 20201230, end: 20210820
  2. ASPIRIN [Suspect]
     Active Substance: ASPIRIN
     Indication: Stent placement
     Dosage: 0.1 G, QD
     Route: 048
     Dates: start: 20201230, end: 20210819

REACTIONS (3)
  - Asthenia [Recovering/Resolving]
  - Gastrointestinal haemorrhage [Recovering/Resolving]
  - Vomiting [Recovering/Resolving]

NARRATIVE: CASE EVENT DATE: 20210819
